FAERS Safety Report 6910493-3 (Version None)
Quarter: 2010Q3

REPORT INFORMATION
  Report Type: 
  Country: None (occurrence: None)
  Receive Date: 20100806
  Receipt Date: 20100727
  Transmission Date: 20110219
  Serious: Yes (Hospitalization)
  Sender: FDA-Public Use
  Company Number: US-JNJFOC-20100708209

PATIENT
  Sex: Male

DRUGS (7)
  1. REMICADE [Suspect]
     Indication: CROHN'S DISEASE
     Route: 042
  2. PREDNISONE [Concomitant]
  3. ASACOL [Concomitant]
  4. DIOVAN [Concomitant]
  5. PROTONIX [Concomitant]
  6. FISH OIL [Concomitant]
  7. FLAXSEED [Concomitant]

REACTIONS (2)
  - HAEMORRHAGE [None]
  - PULMONARY EMBOLISM [None]
